FAERS Safety Report 6772949-6 (Version None)
Quarter: 2010Q2

REPORT INFORMATION
  Report Type: 
  Country: None (occurrence: None)
  Receive Date: 20100520
  Receipt Date: 20100301
  Transmission Date: 20101027
  Serious: Yes (Other)
  Sender: FDA-Public Use
  Company Number: 2010027451

PATIENT
  Age: 70 Year
  Sex: Female
  Weight: 59 kg

DRUGS (10)
  1. PROVERA [Suspect]
     Indication: HORMONE REPLACEMENT THERAPY
     Dosage: 2.5, ORAL
     Route: 048
     Dates: start: 19870101, end: 19980101
  2. PREMARIN [Suspect]
     Indication: HORMONE REPLACEMENT THERAPY
     Dosage: 0.625
     Dates: start: 19870101, end: 19980101
  3. PREMPRO [Suspect]
     Indication: HORMONE REPLACEMENT THERAPY
     Dosage: 0.625/2.5
     Dates: start: 19980101, end: 19980101
  4. ACCUPRIL [Concomitant]
  5. ALPRAZOLAM [Concomitant]
  6. PAXIL [Concomitant]
  7. ZANTAC 150 [Concomitant]
  8. CLARITIN [Concomitant]
  9. INDAPAMIDE [Concomitant]
  10. COUMADIN [Concomitant]

REACTIONS (2)
  - BREAST CANCER FEMALE [None]
  - DEEP VEIN THROMBOSIS [None]
